FAERS Safety Report 16211935 (Version 1)
Quarter: 2019Q2

REPORT INFORMATION
  Report Type: Spontaneous
  Country: DE (occurrence: DE)
  Receive Date: 20190418
  Receipt Date: 20190418
  Transmission Date: 20190711
  Serious: Yes (Hospitalization)
  Sender: FDA-Public Use
  Company Number: DE-AMGEN-DEUNI2019058870

PATIENT
  Age: 82 Year
  Sex: Male
  Weight: 114.3 kg

DRUGS (5)
  1. EPOETIN ALFA [Suspect]
     Active Substance: ERYTHROPOIETIN
     Indication: NEPHROGENIC ANAEMIA
     Dosage: UNK
     Route: 065
     Dates: start: 20180530
  2. DAPRODUSTAT [Suspect]
     Active Substance: DAPRODUSTAT
     Indication: NEPHROGENIC ANAEMIA
     Dosage: UNK
     Route: 065
     Dates: start: 20180530
  3. CEFUROXIM [CEFUROXIME SODIUM] [Suspect]
     Active Substance: CEFUROXIME SODIUM
     Indication: SHUNT MALFUNCTION
     Dosage: 1.5 GRAM
     Route: 042
     Dates: start: 20190322, end: 20190322
  4. ARANESP [Suspect]
     Active Substance: DARBEPOETIN ALFA
     Indication: NEPHROGENIC ANAEMIA
     Dosage: UNK
     Route: 065
     Dates: start: 20180530
  5. MARCUMAR [Concomitant]
     Active Substance: PHENPROCOUMON
     Indication: THROMBOSIS PROPHYLAXIS
     Dosage: UNK UNK, AS NECESSARY (PRN)
     Route: 048
     Dates: start: 20150527, end: 20181116

REACTIONS (1)
  - Shunt malfunction [Recovered/Resolved]

NARRATIVE: CASE EVENT DATE: 20190322
